FAERS Safety Report 8131771-9 (Version None)
Quarter: 2012Q1

REPORT INFORMATION
  Report Type: 
  Country: None (occurrence: None)
  Receive Date: 20120208
  Receipt Date: 20120130
  Transmission Date: 20120608
  Serious: Yes (Other)
  Sender: FDA-Public Use
  Company Number: AUR-APL-2012-00718

PATIENT
  Age: 21 Year
  Sex: Male

DRUGS (1)
  1. ZOLPIDEM [Suspect]
     Indication: INSOMNIA
     Dosage: (12.5 MG, AT BED TIME),UNKNOWN

REACTIONS (4)
  - ALCOHOL USE [None]
  - DYSARTHRIA [None]
  - IMPAIRED DRIVING ABILITY [None]
  - LEGAL PROBLEM [None]
